FAERS Safety Report 4902936-1 (Version None)
Quarter: 2006Q1

REPORT INFORMATION
  Report Type: 
  Country: None (occurrence: None)
  Receive Date: 20060207
  Receipt Date: 20060126
  Transmission Date: 20060701
  Serious: Yes (Other)
  Sender: FDA-Public Use
  Company Number: US-JNJFOC-20060106152

PATIENT
  Age: 11 Year
  Sex: Female
  Weight: 29.48 kg

DRUGS (1)
  1. CONCERTA [Suspect]

REACTIONS (3)
  - ANOREXIA [None]
  - GROWTH RETARDATION [None]
  - SLEEP DISORDER [None]
